FAERS Safety Report 8301381-9 (Version None)
Quarter: 2012Q2

REPORT INFORMATION
  Report Type: 
  Country: None (occurrence: None)
  Receive Date: 20120420
  Receipt Date: 20120417
  Transmission Date: 20120825
  Serious: Yes (Hospitalization, Other)
  Sender: FDA-Public Use
  Company Number: BR-ROCHE-1032232

PATIENT
  Sex: Female
  Weight: 64 kg

DRUGS (2)
  1. ACTEMRA [Suspect]
     Indication: RHEUMATOID ARTHRITIS
     Route: 042
     Dates: start: 20110812
  2. WARFARIN SODIUM [Concomitant]
     Indication: THROMBOSIS

REACTIONS (5)
  - FALL [None]
  - THROMBOSIS [None]
  - PAIN IN EXTREMITY [None]
  - JOINT INJURY [None]
  - SPINAL COLUMN INJURY [None]
